FAERS Safety Report 5271421-2 (Version None)
Quarter: 2007Q1

REPORT INFORMATION
  Report Type: 
  Country: None (occurrence: None)
  Receive Date: 20061214
  Receipt Date: 20060112
  Transmission Date: 20070707
  Serious: Yes (Hospitalization, Other)
  Sender: FDA-Public Use
  Company Number: 2005002837

PATIENT
  Age: 57 Year
  Sex: Female
  Weight: 73.9363 kg

DRUGS (7)
  1. BEXTRA [Suspect]
     Indication: BURSITIS
     Dosage: 20 MG, (20 MG, 1 IN 1 D),ORAL
     Route: 048
     Dates: start: 20020101, end: 20041225
  2. VERAPAMIL [Concomitant]
  3. FLEXERIL [Concomitant]
  4. XANAX [Concomitant]
  5. PREVACID [Concomitant]
  6. ULTRAM [Concomitant]
  7. LEXAPRO [Concomitant]

REACTIONS (8)
  - ALOPECIA [None]
  - CEREBROVASCULAR ACCIDENT [None]
  - DYSGRAPHIA [None]
  - HEART RATE INCREASED [None]
  - MEMORY IMPAIRMENT [None]
  - MYOCARDIAL INFARCTION [None]
  - OBSESSIVE-COMPULSIVE DISORDER [None]
  - SKIN LESION [None]
